FAERS Safety Report 9127745 (Version 2)
Quarter: 2013Q1

REPORT INFORMATION
  Report Type: Report from Study
  Country: JP (occurrence: JP)
  Receive Date: 20130122
  Receipt Date: 20130314
  Transmission Date: 20140127
  Serious: Yes (Other)
  Sender: FDA-Public Use
  Company Number: JP-JNJFOC-20130110529

PATIENT
  Age: 71 Year
  Sex: Male

DRUGS (7)
  1. STELARA [Suspect]
     Indication: PSORIASIS
     Route: 058
     Dates: start: 20120524
  2. STELARA [Suspect]
     Indication: PSORIASIS
     Route: 058
     Dates: start: 20121010, end: 20121010
  3. OXAROL [Concomitant]
     Indication: PSORIASIS
     Route: 061
  4. ANTEBATE [Concomitant]
     Indication: PSORIASIS
     Route: 061
  5. ALMETA [Concomitant]
     Indication: PSORIASIS
     Route: 061
  6. DOVONEX [Concomitant]
     Indication: PSORIASIS
     Route: 061
  7. AZUNOL [Concomitant]
     Indication: PSORIASIS
     Route: 059

REACTIONS (1)
  - Gastric cancer [Recovered/Resolved]
